FAERS Safety Report 4822782-7 (Version None)
Quarter: 2005Q4

REPORT INFORMATION
  Report Type: 
  Country: None (occurrence: None)
  Receive Date: 20051104
  Receipt Date: 20051019
  Transmission Date: 20060501
  Serious: Yes (Hospitalization)
  Sender: FDA-Public Use
  Company Number: DSA_27330_2005

PATIENT
  Age: 62 Year
  Sex: Male

DRUGS (31)
  1. TEMESTA [Suspect]
     Dosage: 5 MG
     Dates: start: 20050708
  2. TEMESTA [Suspect]
     Dosage: 2.5 MG
     Dates: start: 20050707, end: 20050707
  3. TEMESTA [Suspect]
     Dosage: 5 MG
     Dates: start: 20050609, end: 20050611
  4. TEMESTA [Suspect]
     Dosage: 2.5 MG
     Dates: start: 20050607, end: 20050611
  5. TEMESTA [Suspect]
     Dosage: 5 MG
     Dates: start: 20050603, end: 20050606
  6. TEMESTA [Suspect]
     Dosage: 6 MG
     Dates: start: 20050602, end: 20050602
  7. TEMESTA [Suspect]
     Dosage: 2 MG
     Dates: start: 20050530, end: 20050601
  8. TEMESTA [Suspect]
     Dosage: 4 MG
     Dates: start: 20050528, end: 20050529
  9. TEMESTA [Suspect]
     Dosage: 7.5 MG
     Dates: start: 20050526, end: 20050527
  10. ALNA [Suspect]
     Dosage: 0.4 MG
     Dates: start: 20050707
  11. RISPERDAL [Suspect]
     Dosage: 6 MG
     Dates: start: 20050728
  12. RISPERDAL [Suspect]
     Dosage: 5 MG
     Dates: start: 20050718, end: 20050727
  13. RISPERDAL [Suspect]
     Dosage: 4 MG
     Dates: start: 20050623, end: 20050617
  14. RISPERDAL [Suspect]
     Dosage: 8 MG
     Dates: start: 20050601, end: 20050611
  15. RISPERDAL [Suspect]
     Dosage: 6 MG
     Dates: start: 20050527, end: 20050531
  16. RISPERDAL [Suspect]
     Dosage: 7 MG
     Dates: start: 20050526, end: 20050526
  17. RISPERDAL [Suspect]
     Dosage: 2 MG
     Dates: start: 20050525, end: 20050526
  18. ZOLDEN [Suspect]
     Dosage: 10 MG
     Dates: start: 20050626
  19. ZOLDEN [Suspect]
     Dosage: 10 MG
     Dates: start: 20050601, end: 20050601
  20. HALDOL [Concomitant]
  21. MODURETIC 5-50 [Concomitant]
  22. THROMBO ASS [Concomitant]
  23. PSYCHOPAX [Concomitant]
  24. TRILEPTAL [Concomitant]
  25. DOMINAL [Concomitant]
  26. GEWACALM [Concomitant]
  27. TRITTICO [Concomitant]
  28. LOVENOX [Concomitant]
  29. MOTRIM [Concomitant]
  30. MACROGOL [Concomitant]
  31. PANTOPRAZOLE SODIUM [Concomitant]

REACTIONS (2)
  - OEDEMA PERIPHERAL [None]
  - VARICOSE VEIN [None]
